FAERS Safety Report 8317191 (Version 6)
Quarter: 2012Q4

REPORT INFORMATION
  Report Type: Report from Study
  Country: BR (occurrence: BR)
  Receive Date: 20111230
  Receipt Date: 20121003
  Transmission Date: 20130627
  Serious: Yes (Hospitalization, Other)
  Sender: FDA-Public Use
  Company Number: BR-ABBOTT-11P-020-0883536-00

PATIENT
  Age: 61 None
  Sex: Female
  Weight: 74.4 kg

DRUGS (17)
  1. HUMIRA [Suspect]
     Indication: RHEUMATOID ARTHRITIS
     Route: 058
     Dates: start: 20101201
  2. CODEINE [Concomitant]
     Indication: PAIN
     Route: 048
  3. FAMOTIDINE [Concomitant]
     Indication: PAIN
     Route: 048
  4. PARACETAMOL [Concomitant]
     Indication: PAIN
     Route: 048
  5. CYCLOBENZAPRINE [Concomitant]
     Indication: PAIN
     Route: 048
  6. FLUOXETINE [Concomitant]
     Indication: AFFECTIVE DISORDER
     Dosage: 1 tablet daily
     Route: 048
     Dates: start: 201108
  7. FLUOXETINE [Concomitant]
     Indication: ANXIOLYTIC THERAPY
  8. OMEPRAZOLE [Concomitant]
     Indication: GASTRIC DISORDER
     Route: 048
  9. TIBOLONE [Concomitant]
     Indication: HORMONE THERAPY
     Route: 048
  10. CORTISONE [Concomitant]
     Indication: INFLAMMATION
     Route: 048
  11. TIMOLOL [Concomitant]
     Indication: PAIN
     Route: 048
  12. PREDNISONE [Concomitant]
     Indication: PAIN
     Route: 048
  13. NOVIC [Concomitant]
     Indication: MUSCLE RELAXANT THERAPY
     Route: 048
  14. TYLEX [Concomitant]
     Indication: RHEUMATOID ARTHRITIS
     Dosage: 30mg+40mg+300mg+5mg: Daily
     Route: 048
  15. PLANTABEN [Concomitant]
     Indication: CONSTIPATION
     Route: 048
  16. RANITIDINE [Concomitant]
     Indication: ARTHRITIS
     Route: 048
  17. LOSARTAN [Concomitant]
     Indication: BLOOD PRESSURE
     Route: 048

REACTIONS (29)
  - Intervertebral disc displacement [Not Recovered/Not Resolved]
  - Intervertebral disc protrusion [Recovering/Resolving]
  - Abasia [Recovering/Resolving]
  - Pain [Recovering/Resolving]
  - Arthritis [Recovering/Resolving]
  - Intervertebral disc displacement [Unknown]
  - Unevaluable event [Unknown]
  - Bedridden [Recovering/Resolving]
  - Visual impairment [Not Recovered/Not Resolved]
  - Lacrimation increased [Recovering/Resolving]
  - Ocular hyperaemia [Recovered/Resolved]
  - Eye swelling [Recovered/Resolved]
  - Hypoaesthesia [Not Recovered/Not Resolved]
  - Weight increased [Not Recovered/Not Resolved]
  - Finger deformity [Not Recovered/Not Resolved]
  - Arthralgia [Not Recovered/Not Resolved]
  - Rheumatoid nodule [Not Recovered/Not Resolved]
  - Muscle spasms [Not Recovered/Not Resolved]
  - Fatigue [Not Recovered/Not Resolved]
  - Feeling abnormal [Not Recovered/Not Resolved]
  - Arthritis [Unknown]
  - Eye inflammation [Recovering/Resolving]
  - Temporomandibular joint syndrome [Not Recovered/Not Resolved]
  - Arthralgia [Not Recovered/Not Resolved]
  - Drug ineffective [Unknown]
  - Fall [Recovered/Resolved]
  - Mobility decreased [Unknown]
  - Joint stiffness [Not Recovered/Not Resolved]
  - Spinal cord compression [Recovered/Resolved]
